FAERS Safety Report 8918612 (Version 1)
Quarter: 2012Q4

REPORT INFORMATION
  Report Type: 
  Country: US (occurrence: US)
  Receive Date: 20121120
  Receipt Date: 20121120
  Transmission Date: 20130627
  Serious: No
  Sender: FDA-Public Use
  Company Number: US-ASTRAZENECA-2012SE19498

PATIENT
  Age: 76 Year
  Sex: Male
  Weight: 75.3 kg

DRUGS (3)
  1. NEXIUM [Suspect]
     Indication: ULCER
     Route: 048
  2. CARAFATE [Concomitant]
     Indication: FUNGAL INFECTION
     Dosage: 2 TSP FOUR TIMES A DAY
     Route: 048
  3. COREG [Concomitant]
     Indication: CARDIAC DISORDER
     Dosage: EVERY DAY
     Route: 048
     Dates: start: 201111

REACTIONS (3)
  - Lung disorder [Unknown]
  - Oesophageal ulcer [Unknown]
  - Off label use [Unknown]
